FAERS Safety Report 5187462-X (Version None)
Quarter: 2006Q4

REPORT INFORMATION
  Report Type: 
  Country: None (occurrence: None)
  Receive Date: 20061213
  Receipt Date: 20061205
  Transmission Date: 20070319
  Serious: Yes (Life-Threatening, Hospitalization)
  Sender: FDA-Public Use
  Company Number: 163-21880-06110067

PATIENT
  Age: 79 Year
  Sex: Male
  Weight: 96 kg

DRUGS (11)
  1. REVLIMID [Suspect]
     Indication: MULTIPLE MYELOMA
     Dosage: 25 MG, FOR 21 DAYS; 7 DAYS OFF, ORAL
     Route: 048
     Dates: start: 20060801, end: 20061001
  2. DEXAMETHASONE TAB [Suspect]
     Indication: MULTIPLE MYELOMA
     Dosage: 40 MG, QD X 4 Q 2 WEEKS, ORAL
     Route: 048
     Dates: start: 20060705
  3. PAMIDRONATE DISODIUM [Concomitant]
  4. ASPIRIN [Concomitant]
  5. PULMICORT MDI (BUDESONIDE) [Concomitant]
  6. COUMADIN [Concomitant]
  7. MIDODRINE [Concomitant]
  8. SINGULAIR [Concomitant]
  9. SEREVENT DISKUS (SALMETEROL XINAFOATE) [Concomitant]
  10. SENNAKOT (SENNOSIDE A+B) [Concomitant]
  11. OXYCODONE HCL [Concomitant]

REACTIONS (5)
  - COUGH [None]
  - CRYPTOGENIC ORGANISING PNEUMONIA [None]
  - DYSPNOEA [None]
  - INTERSTITIAL LUNG DISEASE [None]
  - LUNG INFILTRATION [None]
